FAERS Safety Report 7745362-2 (Version None)
Quarter: 2011Q3

REPORT INFORMATION
  Report Type: 
  Country: None (occurrence: None)
  Receive Date: 20110825
  Receipt Date: 20110517
  Transmission Date: 20111222
  Serious: No
  Sender: FDA-Public Use
  Company Number: 329778

PATIENT
  Age: 69 Year
  Sex: Female

DRUGS (1)
  1. VICTOZA [Suspect]
     Indication: TYPE 2 DIABETES MELLITUS
     Dosage: 0.6 MG, QD, SUBCUTANEOUS, 1.2 MG, QD, SUBCUTANEOUS; 0.9MG, QD, SUBCUTANEOUS
     Route: 058

REACTIONS (8)
  - REGURGITATION [None]
  - BLOOD GLUCOSE DECREASED [None]
  - CHILLS [None]
  - BACK PAIN [None]
  - ERUCTATION [None]
  - ABDOMINAL PAIN UPPER [None]
  - MUSCLE SPASMS [None]
  - PYREXIA [None]
